FAERS Safety Report 8802546 (Version 1)
Quarter: 2012Q4

REPORT INFORMATION
  Report Type: 
  Country: US (occurrence: US)
  Receive Date: 20120921
  Receipt Date: 20120921
  Transmission Date: 20130627
  Serious: Yes (Hospitalization, Other)
  Sender: FDA-Public Use
  Company Number: US-009507513-2011SP005797

PATIENT

DRUGS (1)
  1. NUVARING [Suspect]
     Indication: CONTRACEPTION
     Dates: start: 20090204, end: 20090301

REACTIONS (8)
  - Pleural effusion [Unknown]
  - Pulmonary embolism [Recovered/Resolved]
  - Deep vein thrombosis [Unknown]
  - Pulmonary infarction [Unknown]
  - Blood glucose increased [Unknown]
  - Surgery [Unknown]
  - Headache [Unknown]
  - Sleep apnoea syndrome [Unknown]
